FAERS Safety Report 9973244 (Version 1)
Quarter: 2014Q1

REPORT INFORMATION
  Report Type: Spontaneous
  Country: US (occurrence: None)
  Receive Date: 20140131
  Receipt Date: 20140131
  Transmission Date: 20141002
  Serious: Yes (Hospitalization)
  Sender: FDA-Public Use
  Company Number: 085435

PATIENT
  Age: 8 Year
  Sex: Male

DRUGS (6)
  1. KEPPRA [Suspect]
     Indication: CONVULSION
     Dosage: (3-4CC/BID.)
     Dates: start: 2005
  2. LEVETIRACETAM [Suspect]
     Indication: CONVULSION
     Dates: start: 2010, end: 2010
  3. UNKNOWN [Suspect]
     Indication: CONVULSION
     Dates: start: 2012
  4. RISPERDAL [Suspect]
     Indication: ABNORMAL BEHAVIOUR
     Dates: start: 2012
  5. DEPOKOTE [Concomitant]
  6. CARBATROL [Concomitant]

REACTIONS (5)
  - Convulsion [None]
  - Aggression [None]
  - Anger [None]
  - Ear infection [None]
  - Weight increased [None]
